FAERS Safety Report 7219854-9 (Version None)
Quarter: 2011Q1

REPORT INFORMATION
  Report Type: 
  Country: None (occurrence: None)
  Receive Date: 20110111
  Receipt Date: 20110103
  Transmission Date: 20110831
  Serious: Yes (Other)
  Sender: FDA-Public Use
  Company Number: CN-ROCHE-752131

PATIENT

DRUGS (2)
  1. MYCOPHENOLATE MOFETIL [Suspect]
     Indication: IMMUNOSUPPRESSION
     Dosage: TWICE A DAY ORALLY AND REDUCED AFTER AT LEAST 12 WEEKS
     Route: 048
  2. PREDNISONE [Suspect]
     Indication: IMMUNOSUPPRESSION
     Dosage: DECREASED GRADUALLY ACCORDING TO THERAPEUTIC EFFECTS AT 4-12 WEEKS.
     Route: 048

REACTIONS (2)
  - ACUTE RESPIRATORY DISTRESS SYNDROME [None]
  - LUNG INFECTION [None]
